FAERS Safety Report 6530005-6 (Version None)
Quarter: 2010Q1

REPORT INFORMATION
  Report Type: 
  Country: None (occurrence: None)
  Receive Date: 20100107
  Receipt Date: 20091230
  Transmission Date: 20100710
  Serious: Yes (Hospitalization, Disabling)
  Sender: FDA-Public Use
  Company Number: BR-GILEAD-2009-0024574

PATIENT
  Sex: Male
  Weight: 66 kg

DRUGS (19)
  1. VIREAD [Suspect]
     Indication: HIV INFECTION
     Route: 048
     Dates: start: 20060801, end: 20090619
  2. VIREAD [Suspect]
     Route: 048
     Dates: start: 20090707
  3. TMC125 [Suspect]
     Indication: HIV INFECTION
     Route: 048
     Dates: start: 20060817, end: 20090619
  4. TMC125 [Suspect]
     Route: 048
     Dates: start: 20090707
  5. TMC114 [Suspect]
     Indication: HIV INFECTION
     Route: 048
     Dates: start: 20060817, end: 20090619
  6. TMC114 [Suspect]
     Route: 048
     Dates: start: 20090707
  7. RITONAVIR [Suspect]
     Indication: HIV INFECTION
     Route: 048
     Dates: start: 20060801
  8. RITONAVIR [Suspect]
     Route: 048
     Dates: start: 20090707
  9. VIDEX [Suspect]
     Indication: HIV INFECTION
     Route: 048
     Dates: start: 20060817, end: 20090619
  10. VIDEX [Suspect]
     Route: 048
     Dates: start: 20090707
  11. RALTEGRAVIR [Concomitant]
     Dates: start: 20090817
  12. FUZEON [Concomitant]
     Indication: HIV INFECTION
     Dates: start: 20070207, end: 20090817
  13. BACLOFEN [Concomitant]
  14. BROMOPRIDE [Concomitant]
     Route: 042
  15. PANTOPRAZOL [Concomitant]
     Route: 042
  16. CITALOPRAM HYDROBROMIDE [Concomitant]
     Route: 048
  17. CLONAZEPAM [Concomitant]
     Route: 048
  18. ACICLOVIR [Concomitant]
     Indication: HERPES SIMPLEX
     Dates: start: 20090401
  19. BACTRIM [Concomitant]
     Indication: PNEUMOCYSTIS JIROVECI PNEUMONIA
     Route: 048

REACTIONS (2)
  - BACK PAIN [None]
  - OSTEOPOROSIS [None]
